FAERS Safety Report 24978923 (Version 1)
Quarter: 2025Q1

REPORT INFORMATION
  Report Type: Spontaneous
  Country: US (occurrence: US)
  Receive Date: 20250218
  Receipt Date: 20250218
  Transmission Date: 20250408
  Serious: No
  Sender: ELI LILLY AND COMPANY
  Company Number: US-ELI_LILLY_AND_COMPANY-US202502006869

PATIENT
  Sex: Female

DRUGS (1)
  1. ZEPBOUND [Suspect]
     Active Substance: TIRZEPATIDE
     Indication: Weight control
     Route: 065
     Dates: start: 202412

REACTIONS (5)
  - Cough [Recovering/Resolving]
  - Sinus disorder [Recovering/Resolving]
  - Ear pain [Recovering/Resolving]
  - Throat irritation [Recovering/Resolving]
  - Hypersensitivity [Recovering/Resolving]
